FAERS Safety Report 6966392-4 (Version None)
Quarter: 2010Q3

REPORT INFORMATION
  Report Type: 
  Country: None (occurrence: None)
  Receive Date: 20100903
  Receipt Date: 20100827
  Transmission Date: 20110219
  Serious: Yes (Other)
  Sender: FDA-Public Use
  Company Number: US-AMGEN-QUU434381

PATIENT
  Sex: Female

DRUGS (2)
  1. ENBREL [Suspect]
     Indication: RHEUMATOID ARTHRITIS
  2. METHOTREXATE [Concomitant]
     Dates: start: 20090101

REACTIONS (4)
  - FATIGUE [None]
  - MALAISE [None]
  - THYROID NEOPLASM [None]
  - WHITE BLOOD CELL COUNT DECREASED [None]
